FAERS Safety Report 18810063 (Version 1)
Quarter: 2021Q1

REPORT INFORMATION
  Report Type: Spontaneous
  Country: JP (occurrence: JP)
  Receive Date: 20210129
  Receipt Date: 20210129
  Transmission Date: 20210419
  Serious: Yes (Life-Threatening, Hospitalization)
  Sender: FDA-Public Use
  Company Number: JP-TEVA-2021-JP-1874573

PATIENT
  Age: 11 Month
  Sex: Male

DRUGS (3)
  1. TEBIPENEM?PIVOXIL [Suspect]
     Active Substance: TEBIPENEM PIVOXIL
     Indication: OTITIS MEDIA
     Route: 065
  2. AMOXICILLIN. [Suspect]
     Active Substance: AMOXICILLIN
     Indication: OTITIS MEDIA
     Route: 048
  3. CEFDINIR. [Suspect]
     Active Substance: CEFDINIR
     Indication: OTITIS MEDIA
     Route: 048

REACTIONS (8)
  - Clostridium difficile infection [Recovered/Resolved]
  - Hypoproteinaemia [Recovered/Resolved]
  - Blood lactic acid increased [Recovered/Resolved]
  - Disseminated intravascular coagulation [Recovered/Resolved]
  - Renal impairment [Recovered/Resolved]
  - Coagulopathy [Recovered/Resolved]
  - Thrombocytopenia [Recovered/Resolved]
  - Septic shock [Recovered/Resolved]
